FAERS Safety Report 19224333 (Version 10)
Quarter: 2022Q3

REPORT INFORMATION
  Report Type: Report from Study
  Country: PL (occurrence: PL)
  Receive Date: 20210506
  Receipt Date: 20220712
  Transmission Date: 20221027
  Serious: Yes (Hospitalization)
  Sender: FDA-Public Use
  Company Number: PL-GLAXOSMITHKLINE-PL2021GSK094975

PATIENT
  Age: 73 Year
  Sex: Female

DRUGS (17)
  1. POMALIDOMIDE [Suspect]
     Active Substance: POMALIDOMIDE
     Indication: Plasma cell myeloma
     Dosage: 4 MG, ON DAYS1 TO 21 OF EACH 28  DAYS CYCLE
     Route: 048
     Dates: start: 20210401, end: 20210419
  2. POMALIDOMIDE [Suspect]
     Active Substance: POMALIDOMIDE
     Dosage: 3 MG, ON DAYS1 TO 21 OF EACH 28  DAYS CYCLE
     Route: 048
     Dates: start: 20210513, end: 20210519
  3. POMALIDOMIDE [Suspect]
     Active Substance: POMALIDOMIDE
     Dosage: 3 MG, ON DAYS1 TO 21 OF EACH 28  DAYS CYCLE
     Route: 048
     Dates: start: 20210527, end: 20210610
  4. DEXAMETHASONE [Suspect]
     Active Substance: DEXAMETHASONE
     Indication: Plasma cell myeloma
     Dosage: 20 MG DOSE ONCE WEEKLY (DAYS1,8, 15 AND 22)
     Route: 048
     Dates: start: 20210401
  5. LYRICA [Concomitant]
     Active Substance: PREGABALIN
     Indication: Polyneuropathy
     Dosage: 150 MG, BID
     Route: 048
     Dates: start: 201902
  6. AMITRIPTYLINE [Concomitant]
     Active Substance: AMITRIPTYLINE
     Indication: Polyneuropathy
     Dosage: 25 MG, QD
     Route: 048
     Dates: start: 201902
  7. PANTOPRAZOLE SODIUM [Concomitant]
     Active Substance: PANTOPRAZOLE SODIUM
     Indication: Gastrooesophageal reflux prophylaxis
     Dosage: 20 MG, QD
     Route: 048
     Dates: start: 20171001
  8. BISOPROLOL [Concomitant]
     Active Substance: BISOPROLOL
     Indication: Hypertension
     Dosage: 5 MG, QD
     Route: 048
     Dates: start: 2008
  9. ALLOPURINOL [Concomitant]
     Active Substance: ALLOPURINOL
     Indication: Metabolic disorder prophylaxis
     Dosage: 100 MG, BID
     Route: 048
     Dates: start: 20170213
  10. GENSULIN M30 [Concomitant]
     Indication: Diabetes mellitus
     Dosage: 22 UNIT, BID
     Route: 058
     Dates: start: 20180101
  11. DIGOXIN [Concomitant]
     Active Substance: DIGOXIN
     Indication: Atrial fibrillation
     Dosage: 0.1 MG FOUR TIMES A WEEK
     Route: 048
     Dates: start: 20150101
  12. ENOXAPARIN SODIUM [Concomitant]
     Active Substance: ENOXAPARIN SODIUM
     Indication: Thrombosis prophylaxis
     Dosage: 40 MG, QD
     Route: 048
     Dates: start: 20171001
  13. ENOXAPARIN SODIUM [Concomitant]
     Active Substance: ENOXAPARIN SODIUM
     Indication: Atrial fibrillation
  14. CALPEROS [Concomitant]
     Indication: Prophylaxis
     Dosage: 1000 MG, QD
     Route: 048
     Dates: start: 201710
  15. CHOLECALCIFEROL [Concomitant]
     Active Substance: CHOLECALCIFEROL
     Indication: Prophylaxis
     Dosage: 1000 MG, QD
     Route: 048
     Dates: start: 201710
  16. POTASSIUM CHLORIDE [Concomitant]
     Active Substance: POTASSIUM CHLORIDE
     Indication: Metabolic disorder prophylaxis
     Dosage: 391 MG, Q4H
     Route: 048
     Dates: start: 20190101
  17. FUROSEMIDE [Concomitant]
     Active Substance: FUROSEMIDE
     Indication: Vascular disorder prophylaxis
     Dosage: 40 MG, QD
     Route: 048
     Dates: start: 20190101

REACTIONS (1)
  - Pancytopenia [Recovered/Resolved]

NARRATIVE: CASE EVENT DATE: 20210420
